FAERS Safety Report 14338041 (Version 12)
Quarter: 2021Q4

REPORT INFORMATION
  Report Type: Spontaneous
  Country: CA (occurrence: CA)
  Receive Date: 20171229
  Receipt Date: 20211125
  Transmission Date: 20220303
  Serious: Yes (Life-Threatening, Hospitalization, Other)
  Sender: FDA-Public Use
  Company Number: CA-TAKEDA-2017TUS027021

PATIENT
  Age: 64 Year
  Sex: Male
  Weight: 70 kg

DRUGS (23)
  1. PANTOPRAZOLE [Suspect]
     Active Substance: PANTOPRAZOLE
     Dosage: UNK
     Route: 048
  2. PANTOPRAZOLE MAGNESIUM [Suspect]
     Active Substance: PANTOPRAZOLE MAGNESIUM
     Dosage: UNK
     Route: 048
     Dates: start: 20160420
  3. LORAZEPAM [Suspect]
     Active Substance: LORAZEPAM
     Dosage: UNK
     Route: 048
  4. PROPRANOLOL HYDROCHLORIDE [Suspect]
     Active Substance: PROPRANOLOL HYDROCHLORIDE
     Dosage: UNK
     Route: 048
  5. TOVIAZ [Suspect]
     Active Substance: FESOTERODINE FUMARATE
     Dosage: UNK
     Route: 048
  6. CITALOPRAM HYDROBROMIDE [Suspect]
     Active Substance: CITALOPRAM HYDROBROMIDE
     Dosage: UNK
     Route: 048
  7. OXYCODONE HYDROCHLORIDE [Suspect]
     Active Substance: OXYCODONE HYDROCHLORIDE
     Dosage: UNK
     Route: 048
  8. LEVOTHYROXINE SODIUM [Suspect]
     Active Substance: LEVOTHYROXINE SODIUM
     Dosage: UNK
     Route: 048
  9. LOPERAMIDE [Suspect]
     Active Substance: LOPERAMIDE
     Dosage: UNK
     Route: 048
     Dates: start: 20160801
  10. OFEV [Suspect]
     Active Substance: NINTEDANIB
     Indication: Pulmonary fibrosis
     Dosage: 150 MG, 1X/DAY
     Route: 048
     Dates: start: 20160420, end: 20160902
  11. OFEV [Suspect]
     Active Substance: NINTEDANIB
     Dosage: 100 MG, 2X/DAY
     Route: 048
     Dates: start: 20160903
  12. OFEV [Suspect]
     Active Substance: NINTEDANIB
     Dosage: 150 MG, 2X/DAY
     Route: 048
  13. OFEV [Suspect]
     Active Substance: NINTEDANIB
     Dosage: 100 MG, 2X/DAY
     Route: 048
  14. OFEV [Suspect]
     Active Substance: NINTEDANIB
     Dosage: 150 MG, 2X/DAY
     Route: 048
  15. OFEV [Suspect]
     Active Substance: NINTEDANIB
     Dosage: 100 MG, 2X/DAY
     Route: 048
     Dates: end: 20161024
  16. OFEV [Suspect]
     Active Substance: NINTEDANIB
     Dosage: 100 MG, 2X/DAY
     Route: 048
  17. BUPROPION [Suspect]
     Active Substance: BUPROPION
     Dosage: UNK
     Route: 048
  18. ROSUVASTATIN CALCIUM [Suspect]
     Active Substance: ROSUVASTATIN CALCIUM
     Dosage: UNK
     Route: 048
  19. ACETAMINOPHEN\OXYCODONE HYDROCHLORIDE [Suspect]
     Active Substance: ACETAMINOPHEN\OXYCODONE HYDROCHLORIDE
     Dosage: UNK
     Route: 048
  20. NINTEDANIB ESYLATE [Suspect]
     Active Substance: NINTEDANIB ESYLATE
     Indication: Pulmonary fibrosis
     Dosage: 100 MILLIGRAM, BID
     Route: 048
  21. NINTEDANIB ESYLATE [Suspect]
     Active Substance: NINTEDANIB ESYLATE
     Dosage: 100 MILLIGRAM, BID
     Route: 048
  22. NINTEDANIB ESYLATE [Suspect]
     Active Substance: NINTEDANIB ESYLATE
     Dosage: 150 MILLIGRAM, BID
     Route: 048
  23. DOMPERIDONE [Concomitant]
     Active Substance: DOMPERIDONE
     Dosage: UNK
     Route: 065
     Dates: start: 20160420

REACTIONS (10)
  - Loss of consciousness [Recovering/Resolving]
  - Pulseless electrical activity [Recovering/Resolving]
  - Aphasia [Recovering/Resolving]
  - Amnesia [Recovering/Resolving]
  - Cerebral infarction [Recovering/Resolving]
  - Cerebrovascular accident [Recovering/Resolving]
  - Transient ischaemic attack [Recovering/Resolving]
  - Overdose [Recovering/Resolving]
  - Off label use [Unknown]
  - Product use issue [Unknown]

NARRATIVE: CASE EVENT DATE: 20160903
